FAERS Safety Report 4513332-3 (Version None)
Quarter: 2004Q4

REPORT INFORMATION
  Report Type: 
  Country: None (occurrence: None)
  Receive Date: 20041130
  Receipt Date: 20040810
  Transmission Date: 20050328
  Serious: Yes (Hospitalization)
  Sender: FDA-Public Use
  Company Number: US-BRISTOL-MYERS SQUIBB COMPANY-12666814

PATIENT
  Age: 75 Year
  Sex: Female

DRUGS (2)
  1. ERBITUX [Suspect]
     Indication: COLON CANCER METASTATIC
     Dosage: THERAPY DATES 01-APR-04 TO 15-JUN-04
     Route: 042
     Dates: start: 20040101, end: 20040101
  2. CAMPTOSAR [Concomitant]

REACTIONS (1)
  - DERMATITIS ACNEIFORM [None]
